FAERS Safety Report 17755423 (Version 1)
Quarter: 2020Q2

REPORT INFORMATION
  Report Type: Spontaneous
  Country: US (occurrence: US)
  Receive Date: 20200506
  Receipt Date: 20200506
  Transmission Date: 20200714
  Serious: No
  Sender: FDA-Public Use
  Company Number: None

PATIENT
  Age: 35 Year
  Sex: Female

DRUGS (13)
  1. SMZ/TMP DS TAB 800-160 [Concomitant]
     Active Substance: SULFAMETHOXAZOLE\TRIMETHOPRIM
  2. HYDROXYCHLOR  TAB 200MG [Concomitant]
     Active Substance: HYDROXYCHLOROQUINE
  3. DIAZEPAM TAB 5MG [Concomitant]
  4. DIPHENHYDRAM INJ 50MG/ML [Concomitant]
  5. GAMUNEX [Suspect]
     Active Substance: HUMAN IMMUNOGLOBULIN G
  6. DULOXETINE CAP 30MG [Concomitant]
  7. CLONAZEPAM TAB 1MG [Concomitant]
     Active Substance: CLONAZEPAM
  8. ENOXAPARIN INJ 30/0.3ML [Concomitant]
     Active Substance: ENOXAPARIN
  9. MOXIFLOXACIN TAB 400MG [Concomitant]
     Active Substance: MOXIFLOXACIN
  10. OXYCOD/APAP TAB 10-325MG [Concomitant]
     Active Substance: ACETAMINOPHEN\OXYCODONE HYDROCHLORIDE
  11. EPINEPHRINE INJ 0.3MG [Concomitant]
  12. GABAPENTIN CAP 400MG [Concomitant]
  13. CETIRIZINE TAB 10MG [Concomitant]

REACTIONS (2)
  - Pyrexia [None]
  - Arthropathy [None]

NARRATIVE: CASE EVENT DATE: 20190901
